FAERS Safety Report 6246268-0 (Version None)
Quarter: 2009Q2

REPORT INFORMATION
  Report Type: 
  Country: None (occurrence: None)
  Receive Date: 20090626
  Receipt Date: 20090616
  Transmission Date: 20091009
  Serious: Yes (Life-Threatening, Hospitalization, Other)
  Sender: FDA-Public Use
  Company Number: NL-JNJFOC-20080103322

PATIENT
  Sex: Male
  Weight: 90 kg

DRUGS (13)
  1. REOPRO [Suspect]
     Indication: STENT PLACEMENT
  2. REOPRO [Suspect]
     Indication: MYOCARDIAL INFARCTION
  3. ASCAL [Suspect]
     Indication: MYOCARDIAL INFARCTION
  4. PLAVIX [Suspect]
     Indication: STENT PLACEMENT
  5. PLAVIX [Suspect]
     Indication: MYOCARDIAL INFARCTION
  6. FRAGMIN [Suspect]
     Indication: MYOCARDIAL INFARCTION
  7. HEPARIN [Suspect]
     Indication: STENT PLACEMENT
  8. HEPARIN [Suspect]
     Indication: MYOCARDIAL INFARCTION
  9. PERINDOPRIL ERBUMINE [Concomitant]
  10. LIPITOR [Concomitant]
  11. SELOKEEN ZOC [Concomitant]
  12. DALTEPARINE [Concomitant]
     Indication: STENT PLACEMENT
  13. DALTEPARINE [Concomitant]
     Indication: MYOCARDIAL INFARCTION

REACTIONS (2)
  - MYOCARDIAL INFARCTION [None]
  - THROMBOCYTOPENIA [None]
